FAERS Safety Report 19170329 (Version 2)
Quarter: 2022Q1

REPORT INFORMATION
  Report Type: Spontaneous
  Country: US (occurrence: US)
  Receive Date: 20210422
  Receipt Date: 20220120
  Transmission Date: 20220424
  Serious: No
  Sender: FDA-Public Use
  Company Number: US-PFIZER INC-2021346164

PATIENT
  Age: 67 Year
  Sex: Female
  Weight: 51.26 kg

DRUGS (1)
  1. LYRICA [Suspect]
     Active Substance: PREGABALIN
     Dosage: UNK
     Dates: start: 2015

REACTIONS (2)
  - Drug ineffective [Unknown]
  - Dysphagia [Unknown]
